FAERS Safety Report 9103667 (Version 3)
Quarter: 2013Q1

REPORT INFORMATION
  Report Type: Report from Study
  Country: ES (occurrence: ES)
  Receive Date: 20130218
  Receipt Date: 20130308
  Transmission Date: 20140127
  Serious: Yes (Hospitalization)
  Sender: FDA-Public Use
  Company Number: ES-ROCHE-1138302

PATIENT
  Age: 77 Year
  Sex: Female
  Weight: 62 kg

DRUGS (33)
  1. BLINDED TOCILIZUMAB [Suspect]
     Indication: RHEUMATOID ARTHRITIS
     Dosage: DATE OF MOST RECENT DOSE PRIOR TO SAE: 27/OCT/2011
     Route: 058
     Dates: start: 20110519
  2. BLINDED TOCILIZUMAB [Suspect]
     Indication: RHEUMATOID ARTHRITIS
     Dosage: DATE OF MOST RECENT DOSE PRIOR TO SAE: 06/OCT/2011
     Route: 042
     Dates: start: 20110519
  3. TOCILIZUMAB [Suspect]
     Indication: RHEUMATOID ARTHRITIS
     Dosage: DATE OF MOST RECENT DOSE PRIOR TO SAE: 07 JAN 2013,  DATE OF MOST RECENT DOSE PRIOR TO SAE:07/JAN/20
     Route: 042
     Dates: start: 20110502
  4. LEFLUNOMIDA [Concomitant]
     Indication: RHEUMATOID ARTHRITIS
     Route: 048
     Dates: start: 20000522
  5. ESOMEPRAZOLE [Concomitant]
     Route: 048
     Dates: start: 20110502, end: 20130204
  6. DIOSMIN/HESPERIDIN [Concomitant]
     Route: 048
     Dates: start: 20030128
  7. QUINAPRIL [Concomitant]
     Route: 048
     Dates: start: 19991028, end: 20130204
  8. AMLODIPINE [Concomitant]
     Route: 048
     Dates: start: 20090507
  9. AMIODARONA [Concomitant]
     Route: 048
     Dates: start: 20070208
  10. FUROSEMIDA [Concomitant]
     Route: 048
     Dates: start: 20090507
  11. ACENOCUMAROL WZF [Concomitant]
     Route: 048
     Dates: start: 20100521
  12. LORMETAZEPAM [Concomitant]
     Route: 048
     Dates: start: 20021202, end: 20130204
  13. CALCITONINA [Concomitant]
     Dosage: 200 INHALATIONS
     Route: 055
     Dates: start: 20010115
  14. CALCIUM SANDOZ FORTE D [Concomitant]
     Route: 048
     Dates: start: 20010115
  15. PARACETAMOL [Concomitant]
     Indication: RHEUMATOID ARTHRITIS
     Route: 048
     Dates: end: 20120925
  16. PARACETAMOL [Concomitant]
     Route: 048
     Dates: start: 20120925
  17. ATORVASTATINA [Concomitant]
     Route: 048
     Dates: start: 20110603
  18. DEFLAZACORT [Concomitant]
     Indication: RHEUMATOID ARTHRITIS
     Route: 048
     Dates: start: 20111103, end: 20121105
  19. GLIMEPIRIDA [Concomitant]
     Route: 048
     Dates: start: 20111103
  20. JANUVIA [Concomitant]
     Route: 048
     Dates: start: 20111204
  21. CEFTRIAXONE [Concomitant]
     Route: 042
     Dates: start: 20120228
  22. CODEINE PHOSPHATE [Concomitant]
     Route: 048
     Dates: start: 20120302
  23. MICONAZOLE [Concomitant]
     Route: 061
     Dates: start: 20120302
  24. BRENTAN [Concomitant]
     Dosage: REPORTED AS  BRENTAN 0,25
     Route: 061
     Dates: start: 20120302
  25. METAMIZOLE [Concomitant]
     Indication: RHEUMATOID ARTHRITIS
     Route: 048
     Dates: start: 20120901, end: 20120902
  26. METAMIZOLE [Concomitant]
     Route: 048
     Dates: start: 20120925
  27. METAMIZOLE [Concomitant]
     Route: 048
     Dates: start: 20121212
  28. CALCIFEDIOL [Concomitant]
     Route: 048
     Dates: start: 20121005
  29. PROLIA [Concomitant]
     Route: 058
     Dates: start: 20121005
  30. MUPIROCINE [Concomitant]
     Dosage: DOSE : 2
     Route: 061
     Dates: start: 20120424
  31. TRAMADOL [Concomitant]
     Indication: RHEUMATOID ARTHRITIS
     Route: 048
     Dates: start: 20121212
  32. FENTANILO [Concomitant]
     Indication: RHEUMATOID ARTHRITIS
     Route: 062
     Dates: start: 20110419, end: 20130107
  33. FENTANILO [Concomitant]
     Route: 062
     Dates: start: 20130107

REACTIONS (3)
  - Device related infection [Not Recovered/Not Resolved]
  - Thoracic vertebral fracture [Recovered/Resolved]
  - Spondylolisthesis [Recovered/Resolved with Sequelae]
